FAERS Safety Report 7859953-1 (Version None)
Quarter: 2011Q4

REPORT INFORMATION
  Report Type: 
  Country: None (occurrence: None)
  Receive Date: 20111025
  Receipt Date: 20111012
  Transmission Date: 20120403
  Serious: Yes (Other)
  Sender: FDA-Public Use
  Company Number: AUR-APL-2011-04901

PATIENT
  Sex: Female
  Weight: 54.4316 kg

DRUGS (6)
  1. METOPROLOL TARTRATE [Concomitant]
  2. LISINOPRIL [Concomitant]
  3. FUROSEMIDE [Concomitant]
  4. ZOLPIDEM [Suspect]
     Indication: INSOMNIA
     Dosage: 1 DOSAGE FORMS, AT BEDTIME), PER ORAL
     Route: 048
  5. VANCOCIN (VANCOMYCIN HYDROCHLORIDE) [Concomitant]
  6. SIMVASTATIN [Concomitant]

REACTIONS (2)
  - MIDDLE INSOMNIA [None]
  - PRODUCT SUBSTITUTION ISSUE [None]
